FAERS Safety Report 5012243-7 (Version None)
Quarter: 2006Q2

REPORT INFORMATION
  Report Type: 
  Country: None (occurrence: None)
  Receive Date: 20060524
  Receipt Date: 20060517
  Transmission Date: 20061013
  Serious: Yes (Hospitalization)
  Sender: FDA-Public Use
  Company Number: 2006022894

PATIENT
  Age: 66 Year
  Sex: Female
  Weight: 97.5 kg

DRUGS (10)
  1. SUTENT [Suspect]
     Indication: METASTATIC RENAL CELL CARCINOMA
     Dosage: 50 MG (50 MG, 1 IN 1 D), ORAL
     Route: 048
     Dates: start: 20060131
  2. INTRON A [Suspect]
     Indication: METASTATIC RENAL CELL CARCINOMA
     Dosage: 6MU, THREE TIMES A WEEK (3 IN 1 WK), SUBCUTANEOUS
     Route: 058
     Dates: start: 20060131
  3. POTASSIUM CHLORIDE [Concomitant]
  4. PROTONIX [Concomitant]
  5. COSAMIN DS (ASCORBIC ACID, CHONDROITIN SULFATE SODIUM, GLUCOSAMINE HYD [Concomitant]
  6. PSYLLIUM (PSYLLIUM) [Concomitant]
  7. MULTIVITAMIN [Concomitant]
  8. LASIX [Concomitant]
  9. METOLAZONE [Concomitant]
  10. COUMADIN [Concomitant]

REACTIONS (6)
  - DEHYDRATION [None]
  - DISEASE PROGRESSION [None]
  - HYPERSOMNIA [None]
  - LETHARGY [None]
  - ORAL INTAKE REDUCED [None]
  - SYNCOPE [None]
